FAERS Safety Report 26107415 (Version 1)
Quarter: 2025Q4

REPORT INFORMATION
  Report Type: Spontaneous
  Country: US (occurrence: US)
  Receive Date: 20251201
  Receipt Date: 20251201
  Transmission Date: 20260118
  Serious: Yes (Other)
  Sender: LEO PHARM
  Company Number: US-LEO Pharma-384525

PATIENT
  Age: 41 Year
  Sex: Female

DRUGS (2)
  1. ADBRY [Suspect]
     Active Substance: TRALOKINUMAB-LDRM
     Indication: Eczema
     Dosage: TREATMENT ONGOING
     Route: 058
     Dates: start: 20251024
  2. ADBRY [Suspect]
     Active Substance: TRALOKINUMAB-LDRM
     Indication: Eczema
     Dosage: TREATMENT ONGOING
     Route: 058
     Dates: start: 202505

REACTIONS (2)
  - Off label use [Unknown]
  - Renal failure [Unknown]

NARRATIVE: CASE EVENT DATE: 20250501
